FAERS Safety Report 25227075 (Version 2)
Quarter: 2025Q2

REPORT INFORMATION
  Report Type: Report from Study
  Country: US (occurrence: US)
  Receive Date: 20250422
  Receipt Date: 20250515
  Transmission Date: 20250716
  Serious: Yes (Other)
  Sender: ALEXION PHARMACEUTICALS
  Company Number: US-AstraZeneca-CH-00850104A

PATIENT

DRUGS (1)
  1. STRENSIQ [Suspect]
     Active Substance: ASFOTASE ALFA
     Indication: Hypophosphatasia
     Route: 065

REACTIONS (9)
  - Neuralgia [Unknown]
  - Choking sensation [Unknown]
  - Dysgeusia [Unknown]
  - Palpitations [Unknown]
  - Hypoaesthesia [Unknown]
  - Gait inability [Unknown]
  - Speech disorder [Unknown]
  - Blood glucose decreased [Unknown]
  - Fatigue [Unknown]
